FAERS Safety Report 8520781 (Version 2)
Quarter: 2012Q4

REPORT INFORMATION
  Report Type: 
  Country: US (occurrence: US)
  Receive Date: 20120418
  Receipt Date: 20121120
  Transmission Date: 20130627
  Serious: No
  Sender: FDA-Public Use
  Company Number: US-ASTRAZENECA-2012SE02161

PATIENT
  Age: 26 Year
  Sex: Female

DRUGS (7)
  1. NEXIUM [Suspect]
     Route: 048
  2. MYFORTIC [Suspect]
     Route: 065
  3. PREDNISONE [Concomitant]
  4. FK [Concomitant]
  5. NORVASC [Concomitant]
  6. CA D [Concomitant]
  7. METHADONE [Concomitant]

REACTIONS (17)
  - Ulcer [Unknown]
  - Gastrooesophageal reflux disease [Unknown]
  - Weight decreased [Unknown]
  - Gastric ulcer [Unknown]
  - Dyspepsia [Unknown]
  - Gastrointestinal disorder [Unknown]
  - Dehydration [Unknown]
  - Blood creatinine increased [Unknown]
  - Asthenia [Unknown]
  - Malaise [Unknown]
  - Epigastric discomfort [Unknown]
  - Diarrhoea [Unknown]
  - Nausea [Unknown]
  - Vomiting [Unknown]
  - Dysgeusia [Unknown]
  - Abdominal pain upper [Unknown]
  - Intentional drug misuse [Unknown]
